FAERS Safety Report 13984959 (Version 3)
Quarter: 2018Q2

REPORT INFORMATION
  Report Type: Report from Study
  Country: US (occurrence: US)
  Receive Date: 20170919
  Receipt Date: 20180405
  Transmission Date: 20180711
  Serious: Yes (Hospitalization, Other)
  Sender: FDA-Public Use
  Company Number: US-ROCHE-1994494

PATIENT
  Sex: Male
  Weight: 80.36 kg

DRUGS (6)
  1. OMEPRAZOLE. [Concomitant]
     Active Substance: OMEPRAZOLE
     Route: 065
  2. ESBRIET [Suspect]
     Active Substance: PIRFENIDONE
     Indication: PULMONARY FIBROSIS
     Dosage: 3 CAPSULES AT BREAKFAST, LUNCH AND DINNER ;ONGOING: YES
     Route: 048
     Dates: start: 201611, end: 201711
  3. ESBRIET [Suspect]
     Active Substance: PIRFENIDONE
     Dosage: 1 TABLET 3 TIMES A DAY;ONGOING-NO
     Route: 048
     Dates: start: 201711
  4. METFORMIN [Concomitant]
     Active Substance: METFORMIN HYDROCHLORIDE
     Route: 065
  5. ATORVASTATIN [Concomitant]
     Active Substance: ATORVASTATIN
     Route: 065
  6. ESBRIET [Suspect]
     Active Substance: PIRFENIDONE
     Route: 048
     Dates: start: 20161013

REACTIONS (9)
  - Angiosarcoma [Unknown]
  - Pneumothorax spontaneous [Unknown]
  - Neoplasm malignant [Unknown]
  - Fatigue [Unknown]
  - Diarrhoea [Unknown]
  - Sarcoma metastatic [Unknown]
  - Dry mouth [Unknown]
  - Dysgeusia [Unknown]
  - Dysphagia [Unknown]

NARRATIVE: CASE EVENT DATE: 2017
